FAERS Safety Report 26191088 (Version 1)
Quarter: 2025Q4

REPORT INFORMATION
  Report Type: Spontaneous
  Country: GB (occurrence: GB)
  Receive Date: 20251223
  Receipt Date: 20251223
  Transmission Date: 20260118
  Serious: Yes (Other)
  Sender: MYLAN
  Company Number: GB-MYLANLABS-2025M1108057

PATIENT
  Age: 27 Year
  Sex: Male

DRUGS (2)
  1. ALLOPURINOL [Suspect]
     Active Substance: ALLOPURINOL
     Indication: Gouty tophus
     Dosage: UNK, OVER A YEAR
  2. ALLOPURINOL [Suspect]
     Active Substance: ALLOPURINOL
     Dosage: UNK, DOSE WAS UPTITRATED

REACTIONS (1)
  - Therapy non-responder [Unknown]
